FAERS Safety Report 13153941 (Version 1)
Quarter: 2017Q1

REPORT INFORMATION
  Report Type: Report from Study
  Country: None (occurrence: ES)
  Receive Date: 20170126
  Receipt Date: 20170126
  Transmission Date: 20170428
  Serious: Yes (Other)
  Sender: FDA-Public Use
  Company Number: ES-BIOVITRUM-2017ES0046

PATIENT
  Age: 11 Year
  Sex: Female
  Weight: 38.5 kg

DRUGS (3)
  1. ORFADIN [Suspect]
     Active Substance: NITISINONE
     Dates: start: 20150408, end: 20160810
  2. ORFADIN [Suspect]
     Active Substance: NITISINONE
     Dates: start: 20160811
  3. ORFADIN [Suspect]
     Active Substance: NITISINONE
     Indication: TYROSINAEMIA
     Dates: start: 20050907

REACTIONS (3)
  - Alpha 1 foetoprotein increased [Unknown]
  - Hepatic adenoma [Unknown]
  - Hepatic steatosis [Unknown]

NARRATIVE: CASE EVENT DATE: 20160810
